FAERS Safety Report 7768650-2 (Version None)
Quarter: 2011Q3

REPORT INFORMATION
  Report Type: 
  Country: None (occurrence: None)
  Receive Date: 20110922
  Receipt Date: 20110715
  Transmission Date: 20111222
  Serious: No
  Sender: FDA-Public Use
  Company Number: US-ASTRAZENECA-2011SE42588

PATIENT
  Age: 62 Year
  Sex: Female
  Weight: 86.2 kg

DRUGS (13)
  1. SEROQUEL [Suspect]
     Route: 048
  2. RITALIN [Concomitant]
  3. RAMIPRIL [Concomitant]
  4. WELLBUTRIN [Concomitant]
  5. METFORMIN [Concomitant]
  6. VITAMIN B-12 [Concomitant]
  7. CRESTOR [Suspect]
     Indication: HYPERCHOLESTEROLAEMIA
     Route: 048
  8. OMEPRAZOLE [Concomitant]
  9. HYDROCODONE [Concomitant]
  10. ASPIRIN [Concomitant]
  11. KLONOPIN [Concomitant]
  12. SEROQUEL [Suspect]
     Indication: BIPOLAR DISORDER
     Dosage: 100-200 MG
     Route: 048
  13. SYNTHROID [Concomitant]

REACTIONS (3)
  - HEART RATE INCREASED [None]
  - DISORIENTATION [None]
  - DRY MOUTH [None]
